FAERS Safety Report 10977493 (Version 1)
Quarter: 2015Q1

REPORT INFORMATION
  Report Type: Spontaneous
  Country: None (occurrence: None)
  Receive Date: 20150330
  Receipt Date: 20150330
  Transmission Date: 20150721
  Serious: Yes (Hospitalization)
  Sender: FDA-Public Use
  Company Number: C-15-0064

PATIENT
  Sex: Female

DRUGS (5)
  1. SODIUM VALPROATE [Concomitant]
     Active Substance: VALPROATE SODIUM
  2. LEVETIRACETAM. [Suspect]
     Active Substance: LEVETIRACETAM
     Indication: ENCEPHALITIS
  3. PHENOBARBITAL. [Concomitant]
     Active Substance: PHENOBARBITAL
  4. MYCOPHENOLATE MOFETIL. [Concomitant]
     Active Substance: MYCOPHENOLATE MOFETIL
  5. PREDNISOLONE. [Concomitant]
     Active Substance: PREDNISOLONE

REACTIONS (4)
  - Granulomatosis with polyangiitis [None]
  - Endotracheal intubation complication [None]
  - Tracheal disorder [None]
  - Laryngeal disorder [None]

NARRATIVE: CASE EVENT DATE: 201502
